FAERS Safety Report 13256458 (Version 11)
Quarter: 2017Q3

REPORT INFORMATION
  Report Type: Spontaneous
  Country: KR (occurrence: KR)
  Receive Date: 20170221
  Receipt Date: 20170912
  Transmission Date: 20171127
  Serious: Yes (Hospitalization, Other)
  Sender: FDA-Public Use
  Company Number: KR-009507513-1702KOR008480

PATIENT
  Age: 69 Year
  Sex: Male
  Weight: 66.1 kg

DRUGS (14)
  1. EMEND (FOSAPREPITANT DIMEGLUMINE) [Suspect]
     Active Substance: FOSAPREPITANT DIMEGLUMINE
     Indication: PROPHYLAXIS OF NAUSEA AND VOMITING
     Dosage: 150 MG, ONCE
     Route: 042
     Dates: start: 20151109, end: 20151109
  2. NORVASC [Concomitant]
     Active Substance: AMLODIPINE BESYLATE
     Indication: HYPERTENSION
     Dosage: 1 TABLET, QD
     Route: 048
     Dates: start: 201507
  3. FOLIC ACID. [Concomitant]
     Active Substance: FOLIC ACID
     Indication: HEADACHE
     Dosage: 1 TABLET, QD
     Route: 048
     Dates: start: 201508
  4. ATACAND [Concomitant]
     Active Substance: CANDESARTAN CILEXETIL
     Indication: HYPERTENSION
     Dosage: 1 TABLET, QD
     Route: 048
     Dates: start: 201507
  5. DICAROL [Concomitant]
     Indication: PAIN
     Dosage: 1 TABLET, TID
     Route: 048
     Dates: start: 201507
  6. EPS [Concomitant]
     Indication: LUNG NEOPLASM MALIGNANT
     Dosage: STRENGTH: 100MG/5ML, 110 MG, QD; CYCLE 1
     Route: 042
     Dates: start: 20151109, end: 20151111
  7. STOGAR [Concomitant]
     Active Substance: LAFUTIDINE
     Indication: DYSPEPSIA
     Dosage: 1 TABLET, BID
     Route: 048
     Dates: start: 201507
  8. CISPLAN [Concomitant]
     Active Substance: CISPLATIN
     Indication: LUNG NEOPLASM MALIGNANT
     Dosage: 110 MG, ONCE; CYCLE 1; STRENGTH: 10MG/20ML
     Route: 042
     Dates: start: 20151109, end: 20151109
  9. ALOXI [Concomitant]
     Active Substance: PALONOSETRON HYDROCHLORIDE
     Indication: PREMEDICATION
     Dosage: 5 ML, ONCE
     Route: 042
     Dates: start: 20151109, end: 20151109
  10. DUPHALAC [Concomitant]
     Active Substance: LACTULOSE
     Indication: DECREASED APPETITE
     Dosage: 1 PK, TID
     Route: 048
     Dates: start: 201508
  11. CODEINE PHOSPHATE [Concomitant]
     Active Substance: CODEINE PHOSPHATE
     Indication: PAIN
     Dosage: 1 TABLET, TID
     Route: 048
     Dates: start: 20151110
  12. TARGIN [Concomitant]
     Active Substance: NALOXONE HYDROCHLORIDE\OXYCODONE HYDROCHLORIDE
     Indication: PAIN
     Dosage: STRENGTH: 10/5 MG, 1 TABLET, BID
     Route: 048
     Dates: start: 20151111
  13. DEXAMETHASONE SODIUM PHOSPHATE. [Concomitant]
     Active Substance: DEXAMETHASONE SODIUM PHOSPHATE
     Indication: PREMEDICATION
     Dosage: 10 MG, QD
     Route: 042
     Dates: start: 20151109, end: 20151111
  14. COUGH SYRUP (AMMONIUM CHLORIDE (+) CHLORPHENIRAMINE MALEATE (+) DIHYDR [Concomitant]
     Indication: PROPHYLAXIS
     Dosage: 20 ML, TID
     Route: 048
     Dates: start: 20151110, end: 20151117

REACTIONS (2)
  - Febrile neutropenia [Recovered/Resolved]
  - Insomnia [Not Recovered/Not Resolved]

NARRATIVE: CASE EVENT DATE: 20151114
